FAERS Safety Report 8553998 (Version 2)
Quarter: 2013Q2

REPORT INFORMATION
  Report Type: Spontaneous
  Country: US (occurrence: None)
  Receive Date: 20120327
  Receipt Date: 20120709
  Transmission Date: 20140414
  Serious: Yes (Other)
  Sender: FDA-Public Use
  Company Number: PHHY2011US19581

PATIENT
  Age: 64 Year
  Sex: Female
  Weight: 83 kg

DRUGS (25)
  1. GLEEVEC [Suspect]
     Indication: CHRONIC MYELOID LEUKAEMIA
     Route: 048
     Dates: start: 20090905
  2. COUMADIN [Concomitant]
  3. MULTAQ [Concomitant]
  4. AMARYL [Concomitant]
  5. METFORMIN HYDROCHLORIDE [Concomitant]
  6. PRAVASTATIN [Concomitant]
  7. LISINOPRIL (LISINOPRIL) [Concomitant]
  8. LANTUS [Concomitant]
  9. MELOXICAM [Concomitant]
  10. GLIMEPIRIDE (GLIMEPIRIDE) [Concomitant]
  11. HYDROCHLOROTHIAZIDE (HYDROCHLOROTHIAZIDE) [Concomitant]
  12. CORDARONE [Concomitant]
  13. LASIX [Concomitant]
  14. PROPRANOLOL [Concomitant]
  15. NEXIUM [Concomitant]
  16. GLYBURIDE (GLIBENCLAMIDE) [Concomitant]
  17. IRON (IRON) [Concomitant]
  18. MIRAPEX [Concomitant]
  19. CARAFATE [Concomitant]
  20. SYNTHROID [Concomitant]
  21. ZOLPIDEM [Concomitant]
  22. KLONOPIN [Concomitant]
  23. XANAX (ALPRAZXOLAM) [Concomitant]
  24. ASPIRIN (ACETYLSALICYLIC ACID) [Concomitant]
  25. DILTIAZEM [Concomitant]

REACTIONS (10)
  - PAIN IN EXTREMITY [None]
  - WEIGHT INCREASED [None]
  - PANCREATITIS [None]
  - CARDIAC FAILURE CONGESTIVE [None]
  - SWELLING [None]
  - Pneumonia [None]
  - Tremor [None]
  - Feeling cold [None]
  - Pain of skin [None]
  - Fluid retention [None]
